FAERS Safety Report 10259307 (Version 2)
Quarter: 2014Q3

REPORT INFORMATION
  Report Type: Spontaneous
  Country: US (occurrence: US)
  Receive Date: 20140625
  Receipt Date: 20140822
  Transmission Date: 20150326
  Serious: Yes (Hospitalization, Other)
  Sender: FDA-Public Use
  Company Number: US-BAYER-2014-095787

PATIENT
  Age: 44 Year
  Sex: Female
  Weight: 58.96 kg

DRUGS (2)
  1. MIRENA [Suspect]
     Active Substance: LEVONORGESTREL
     Indication: CONTRACEPTION
     Dosage: 20 MCG/24HR, CONT
     Route: 015
     Dates: start: 20040218, end: 20090226
  2. MIRENA [Suspect]
     Active Substance: LEVONORGESTREL
     Indication: CONTRACEPTION
     Dosage: 20 MCG/24HR, CONT
     Route: 015
     Dates: start: 20090226, end: 20120425

REACTIONS (11)
  - Uterine cyst [None]
  - Abdominal pain [None]
  - Uterine leiomyoma [None]
  - Uterine perforation [None]
  - Genital haemorrhage [None]
  - Pelvic pain [None]
  - Emotional distress [None]
  - Device issue [None]
  - Anxiety [None]
  - Medical device discomfort [None]
  - Injury [None]

NARRATIVE: CASE EVENT DATE: 2005
